FAERS Safety Report 10341669 (Version 2)
Quarter: 2015Q1

REPORT INFORMATION
  Report Type: Spontaneous
  Country: US (occurrence: None)
  Receive Date: 20140723
  Receipt Date: 20150123
  Transmission Date: 20150720
  Serious: Yes (Hospitalization)
  Sender: FDA-Public Use
  Company Number: UNT-2014-003994

PATIENT
  Sex: Female

DRUGS (2)
  1. REMODULIN [Suspect]
     Active Substance: TREPROSTINIL
     Indication: PULMONARY HYPERTENSION
     Dosage: 90 NG/KG/MIN AT A FREQUENCY OF 0.44ML/HR, IV DRP
     Route: 041
     Dates: start: 20100123
  2. ORENITRAM [Suspect]
     Active Substance: TREPROSTINIL
     Indication: PULMONARY HYPERTENSION
     Route: 048

REACTIONS (4)
  - Cardiac arrest [None]
  - Fluid retention [None]
  - Disease progression [None]
  - Abdominal distension [None]

NARRATIVE: CASE EVENT DATE: 20140630
